FAERS Safety Report 5154276-6 (Version None)
Quarter: 2006Q4

REPORT INFORMATION
  Report Type: 
  Country: None (occurrence: None)
  Receive Date: 20061114
  Receipt Date: 20061103
  Transmission Date: 20070319
  Serious: Yes (Other)
  Sender: FDA-Public Use
  Company Number: GXKR2006NZ07057

PATIENT
  Age: 83 Year
  Sex: Female

DRUGS (4)
  1. OMEPRAZOLE [Suspect]
  2. BENDROFLUAZIDE (BENDROFLUMETHIAZIDE) [Concomitant]
  3. PAROXETINE [Concomitant]
  4. QUINAPRIL HCL [Concomitant]

REACTIONS (3)
  - ANAEMIA [None]
  - NEPHRITIS INTERSTITIAL [None]
  - RENAL FAILURE [None]
